FAERS Safety Report 7590800-1 (Version None)
Quarter: 2011Q3

REPORT INFORMATION
  Report Type: 
  Country: None (occurrence: None)
  Receive Date: 20110705
  Receipt Date: 20110628
  Transmission Date: 20111222
  Serious: Yes (Other)
  Sender: FDA-Public Use
  Company Number: JP-PFIZER INC-2011120223

PATIENT
  Age: 87 Year
  Sex: Male

DRUGS (7)
  1. TAMSULOSIN HCL [Concomitant]
     Dosage: 0.2 MG, UNK
     Route: 048
  2. MAGNESIUM OXIDE [Concomitant]
     Dosage: UNK
     Route: 048
  3. ISOSORBIDE DINITRATE [Concomitant]
     Dosage: 40 MG, UNK
     Route: 048
  4. UBRETID [Concomitant]
     Dosage: UNK
     Route: 048
     Dates: start: 20110525
  5. LIPITOR [Suspect]
     Indication: DYSLIPIDAEMIA
     Dosage: 10 MG, 1X/DAY
     Route: 048
  6. LANSOPRAZOLE [Concomitant]
     Dosage: UNK
     Route: 048
  7. CLARITIN [Concomitant]
     Dosage: UNK
     Route: 048

REACTIONS (1)
  - HYPOGLYCAEMIA [None]
